FAERS Safety Report 9160127 (Version 3)
Quarter: 2014Q3

REPORT INFORMATION
  Report Type: Report from Study
  Country: JP (occurrence: JP)
  Receive Date: 20130313
  Receipt Date: 20140908
  Transmission Date: 20150326
  Serious: Yes (Hospitalization, Other)
  Sender: FDA-Public Use
  Company Number: PHHY2013JP022942

PATIENT
  Age: 42 Year
  Sex: Female

DRUGS (11)
  1. UBRETID [Concomitant]
     Active Substance: DISTIGMINE BROMIDE
     Indication: PROPHYLAXIS
     Dosage: 5 MG, UNK
     Route: 048
     Dates: start: 20130127, end: 20130316
  2. BUP-4 [Concomitant]
     Active Substance: PROPIVERINE
     Dosage: 30 MG, UNK
     Route: 048
     Dates: end: 20130113
  3. TALION [Concomitant]
     Active Substance: BEPOTASTINE
     Indication: RHINITIS ALLERGIC
     Dosage: 20 MG, UNK
     Route: 048
     Dates: start: 20140516
  4. ONEALFA [Concomitant]
     Active Substance: ALFACALCIDOL
     Indication: MULTIPLE SCLEROSIS
     Dosage: 1 UG, UNK
     Route: 048
     Dates: end: 20130113
  5. ALLEGRA [Concomitant]
     Active Substance: FEXOFENADINE HYDROCHLORIDE
     Indication: RHINITIS ALLERGIC
     Dosage: 120 MG, UNK
     Route: 048
     Dates: end: 20140515
  6. PREDNISOLONE. [Concomitant]
     Active Substance: PREDNISOLONE
     Dosage: 100 MG, UNK
     Route: 048
     Dates: start: 20120805, end: 20120806
  7. GILENYA [Suspect]
     Active Substance: FINGOLIMOD HYDROCHLORIDE
     Indication: MULTIPLE SCLEROSIS
     Dosage: 0.5 MG, QD
     Route: 048
     Dates: start: 20120802
  8. SYMMETREL [Concomitant]
     Active Substance: AMANTADINE HYDROCHLORIDE
     Indication: MULTIPLE SCLEROSIS
     Dosage: 200 MG, UNK
     Route: 048
  9. METHYLPREDNISOLONE SODIUM SUCCINATE. [Concomitant]
     Active Substance: METHYLPREDNISOLONE SODIUM SUCCINATE
     Dosage: 1 G, UNK
     Route: 051
     Dates: start: 20120804, end: 20120804
  10. LIORESAL [Concomitant]
     Active Substance: BACLOFEN
     Dosage: 15 MG, UNK
     Route: 048
     Dates: end: 20130113
  11. MONTELUKAST [Concomitant]
     Active Substance: MONTELUKAST SODIUM
     Indication: RHINITIS ALLERGIC
     Dosage: 10 MG, UNK
     Route: 048
     Dates: start: 20140516

REACTIONS (7)
  - Hypertension [Recovered/Resolved]
  - Bundle branch block right [Recovered/Resolved]
  - Multiple sclerosis [Recovered/Resolved]
  - Aspartate aminotransferase increased [Recovered/Resolved]
  - Renal failure [Recovered/Resolved]
  - Convulsion [Recovered/Resolved]
  - Blood lactate dehydrogenase increased [Recovered/Resolved]

NARRATIVE: CASE EVENT DATE: 20120802
